FAERS Safety Report 23636807 (Version 2)
Quarter: 2024Q1

REPORT INFORMATION
  Report Type: Spontaneous
  Country: US (occurrence: US)
  Receive Date: 20240315
  Receipt Date: 20240318
  Transmission Date: 20240410
  Serious: Yes (Other)
  Sender: FDA-Public Use
  Company Number: US-PFIZER INC-202400064852

PATIENT
  Age: 67 Year
  Sex: Female
  Weight: 81.633 kg

DRUGS (2)
  1. HYDROCORTISONE [Suspect]
     Active Substance: HYDROCORTISONE
     Dosage: 15 MG IN THE MORNING AND 10 MG IN THE AFTERNOON
     Route: 048
     Dates: start: 2019
  2. HYDROCORTISONE [Suspect]
     Active Substance: HYDROCORTISONE
     Dosage: 80 MG, DAILY
     Route: 048
     Dates: start: 20240304, end: 20240305

REACTIONS (3)
  - Adrenal insufficiency [Unknown]
  - Neoplasm recurrence [Unknown]
  - Drug ineffective [Unknown]
